FAERS Safety Report 4825640-7 (Version None)
Quarter: 2005Q4

REPORT INFORMATION
  Report Type: 
  Country: None (occurrence: None)
  Receive Date: 20051111
  Receipt Date: 20051012
  Transmission Date: 20060501
  Serious: Yes (Hospitalization)
  Sender: FDA-Public Use
  Company Number: JP-BRISTOL-MYERS SQUIBB COMPANY-13144373

PATIENT
  Age: 64 Year
  Sex: Female

DRUGS (7)
  1. PARAPLATIN [Suspect]
     Indication: LUNG NEOPLASM MALIGNANT
     Route: 041
     Dates: start: 20050928, end: 20050928
  2. TAXOL [Suspect]
     Indication: LUNG NEOPLASM MALIGNANT
     Route: 041
     Dates: start: 20050928, end: 20050928
  3. DECADRON [Concomitant]
     Route: 041
     Dates: start: 20050928, end: 20050928
  4. ZANTAC [Concomitant]
     Dates: start: 20050928, end: 20050928
  5. RESTAMIN [Concomitant]
     Route: 048
     Dates: start: 20050928, end: 20050928
  6. KYTRIL [Concomitant]
     Route: 041
     Dates: start: 20050928, end: 20050928
  7. PRIMPERAN INJ [Concomitant]
     Route: 041
     Dates: start: 20050928, end: 20050928

REACTIONS (1)
  - DELIRIUM [None]
